FAERS Safety Report 10363138 (Version 1)
Quarter: 2014Q1

REPORT INFORMATION
  Report Type: Spontaneous
  Country: US (occurrence: None)
  Receive Date: 20140306
  Receipt Date: 20140306
  Transmission Date: 20141002
  Serious: Yes (Hospitalization)
  Sender: FDA-Public Use
  Company Number: 163-21880-13074244

PATIENT
  Age: 76 Year
  Sex: Female
  Weight: 87.54 kg

DRUGS (4)
  1. REVLIMID [Suspect]
     Indication: CHRONIC LYMPHOCYTIC LEUKAEMIA
     Route: 048
     Dates: start: 20130711
  2. PENTAMIDINE (PENTAMIDINE) (INHALANT) [Concomitant]
  3. IVIG (IMMUNOGLOBULIN G HUMAN) [Concomitant]
  4. FLUCONAZOLE (FLUCONAZOLE) [Concomitant]

REACTIONS (6)
  - Hyponatraemia [None]
  - Asthenia [None]
  - Anaemia [None]
  - Fatigue [None]
  - Sinusitis [None]
  - Thrombocytopenia [None]
